FAERS Safety Report 15280773 (Version 3)
Quarter: 2018Q3

REPORT INFORMATION
  Report Type: Spontaneous
  Country: US (occurrence: US)
  Receive Date: 20180815
  Receipt Date: 20180915
  Transmission Date: 20181010
  Serious: Yes (Death, Other)
  Sender: FDA-Public Use
  Company Number: PHEH2018US032442

PATIENT
  Age: 29 Year
  Sex: Male

DRUGS (2)
  1. VOTRIENT [Suspect]
     Active Substance: PAZOPANIB HYDROCHLORIDE
     Indication: RENAL CELL CARCINOMA
  2. VOTRIENT [Suspect]
     Active Substance: PAZOPANIB HYDROCHLORIDE
     Indication: BONE CANCER
     Dosage: 800 MG, QD
     Route: 048
     Dates: start: 20180709

REACTIONS (5)
  - Product use in unapproved indication [Unknown]
  - Accident [Unknown]
  - Death [Fatal]
  - Increased appetite [Unknown]
  - Blister [Unknown]

NARRATIVE: CASE EVENT DATE: 20180910
